FAERS Safety Report 23782753 (Version 2)
Quarter: 2024Q2

REPORT INFORMATION
  Report Type: Spontaneous
  Country: US (occurrence: US)
  Receive Date: 20240425
  Receipt Date: 20240508
  Transmission Date: 20240715
  Serious: No
  Sender: FDA-Public Use
  Company Number: US-JNJFOC-20240401077

PATIENT
  Age: 44 Year
  Sex: Female

DRUGS (10)
  1. IMODIUM [Suspect]
     Active Substance: LOPERAMIDE HYDROCHLORIDE
     Indication: Diarrhoea
     Route: 065
  2. REMODULIN [Concomitant]
     Active Substance: TREPROSTINIL
     Indication: Pulmonary arterial hypertension
     Route: 058
     Dates: end: 202308
  3. REMODULIN [Concomitant]
     Active Substance: TREPROSTINIL
     Dosage: CONTINUOUS DELIVERED VIA CADD MS3 PUMP VIA SUBCUTANEOUS (SQ) ROUTE
     Route: 058
     Dates: start: 2023
  4. REMODULIN [Concomitant]
     Active Substance: TREPROSTINIL
     Route: 058
     Dates: start: 202308
  5. REMODULIN [Concomitant]
     Active Substance: TREPROSTINIL
     Dosage: DELIVERED VIA REMUNITY (PATIENT FILLED) PUMP AND THE DOSE OF 0.06528 UG/KG (AT THE RATE OF 47UL/HR)
     Route: 058
     Dates: start: 202308
  6. REMODULIN [Concomitant]
     Active Substance: TREPROSTINIL
     Dosage: CONTINUOUS VIA SQ ROUTE
     Route: 058
  7. TADALAFIL [Concomitant]
     Active Substance: TADALAFIL
     Indication: Product used for unknown indication
     Route: 065
  8. AMBRISENTAN [Concomitant]
     Active Substance: AMBRISENTAN
     Indication: Product used for unknown indication
     Route: 065
  9. OXYGEN [Concomitant]
     Active Substance: OXYGEN
     Indication: Product used for unknown indication
     Route: 065
  10. TREPROSTINIL SODIUM [Concomitant]
     Active Substance: TREPROSTINIL SODIUM
     Indication: Pulmonary arterial hypertension
     Route: 058

REACTIONS (1)
  - Drug ineffective [Unknown]
